FAERS Safety Report 15203520 (Version 5)
Quarter: 2020Q3

REPORT INFORMATION
  Report Type: Report from Study
  Country: IT (occurrence: IT)
  Receive Date: 20180726
  Receipt Date: 20181213
  Transmission Date: 20201105
  Serious: Yes (Hospitalization, Other)
  Sender: FDA-Public Use
  Company Number: IT-ASTRAZENECA-2018SE73412

PATIENT
  Age: 920 Month
  Sex: Female

DRUGS (13)
  1. DURVALUMAB. [Suspect]
     Active Substance: DURVALUMAB
     Indication: HEPATOCELLULAR CARCINOMA
     Route: 042
     Dates: start: 20180531, end: 20180531
  2. DURVALUMAB. [Suspect]
     Active Substance: DURVALUMAB
     Indication: HEPATOCELLULAR CARCINOMA
     Route: 042
     Dates: start: 20180411, end: 20180411
  3. DURVALUMAB. [Suspect]
     Active Substance: DURVALUMAB
     Indication: HEPATOCELLULAR CARCINOMA
     Route: 042
     Dates: start: 20180504, end: 20180504
  4. TREMELIMUMAB. [Suspect]
     Active Substance: TREMELIMUMAB
     Indication: HEPATOCELLULAR CARCINOMA
     Route: 042
     Dates: start: 20180411, end: 20180411
  5. DESLORATADINE. [Concomitant]
     Active Substance: DESLORATADINE
     Indication: CHOLESTATIC PRURITUS
     Route: 048
  6. URSODEOXYCHOLIC ACID [Concomitant]
     Active Substance: URSODIOL
     Indication: CHOLESTATIC PRURITUS
     Route: 048
  7. POTASSIUM CANRENOATE [Concomitant]
     Active Substance: CANRENOATE POTASSIUM
     Indication: HEPATIC CIRRHOSIS
     Route: 048
  8. COLESTYRAMINE [Concomitant]
     Active Substance: CHOLESTYRAMINE
     Indication: CHOLESTATIC PRURITUS
     Route: 065
  9. RED BLOOD CELL TRANSFUSION [Concomitant]
     Indication: ANAEMIA
     Route: 042
  10. TREMELIMUMAB. [Suspect]
     Active Substance: TREMELIMUMAB
     Indication: HEPATOCELLULAR CARCINOMA
     Route: 042
     Dates: start: 20180504, end: 20180504
  11. FUROSEMIDE. [Concomitant]
     Active Substance: FUROSEMIDE
     Indication: HEPATIC CIRRHOSIS
     Route: 048
  12. TREMELIMUMAB. [Suspect]
     Active Substance: TREMELIMUMAB
     Indication: HEPATOCELLULAR CARCINOMA
     Route: 042
     Dates: start: 20180531, end: 20180531
  13. OMEPRAZOLE. [Concomitant]
     Active Substance: OMEPRAZOLE
     Indication: GASTRIC DISORDER
     Route: 048

REACTIONS (1)
  - Haemoperitoneum [Recovering/Resolving]

NARRATIVE: CASE EVENT DATE: 20180531
